FAERS Safety Report 4517330-5 (Version None)
Quarter: 2005Q1

REPORT INFORMATION
  Report Type: 
  Country: None (occurrence: None)
  Receive Date: 20041007
  Receipt Date: 20040416
  Transmission Date: 20050727
  Serious: Yes (Other)
  Sender: FDA-Public Use
  Company Number: 2004-04-0820

PATIENT
  Age: 53 Year
  Sex: Female

DRUGS (13)
  1. TEMODAR [Suspect]
     Indication: MIXED OLIGO-ASTROCYTOMA
     Dosage: 200-300 MG QD ORAL
     Route: 048
     Dates: start: 20030908, end: 20030908
  2. TEMODAR [Suspect]
     Indication: MIXED OLIGO-ASTROCYTOMA
     Dosage: 200-300 MG QD ORAL
     Route: 048
     Dates: start: 20030912, end: 20030912
  3. TEMODAR [Suspect]
     Indication: MIXED OLIGO-ASTROCYTOMA
     Dosage: 200-300 MG QD ORAL
     Route: 048
     Dates: start: 20031006, end: 20031006
  4. TEMODAR [Suspect]
     Indication: MIXED OLIGO-ASTROCYTOMA
     Dosage: 200-300 MG QD ORAL
     Route: 048
     Dates: start: 20031007, end: 20031010
  5. TEMODAR [Suspect]
     Indication: MIXED OLIGO-ASTROCYTOMA
     Dosage: 200-300 MG QD ORAL
     Route: 048
     Dates: start: 20031104, end: 20031104
  6. TEMODAR [Suspect]
     Indication: MIXED OLIGO-ASTROCYTOMA
     Dosage: 200-300 MG QD ORAL
     Route: 048
     Dates: start: 20031105, end: 20031108
  7. TEMODAR [Suspect]
     Indication: MIXED OLIGO-ASTROCYTOMA
     Dosage: 200-300 MG QD ORAL
     Route: 048
     Dates: start: 20031201, end: 20031201
  8. TEMODAR [Suspect]
     Indication: MIXED OLIGO-ASTROCYTOMA
     Dosage: 200-300 MG QD ORAL
     Route: 048
     Dates: start: 20031202, end: 20031205
  9. TEMODAR [Suspect]
     Indication: MIXED OLIGO-ASTROCYTOMA
     Dosage: 200-300 MG QD ORAL
     Route: 048
     Dates: start: 20040106, end: 20040106
  10. TEMODAR [Suspect]
     Indication: MIXED OLIGO-ASTROCYTOMA
     Dosage: 200-300 MG QD ORAL
     Route: 048
     Dates: start: 20040311, end: 20040311
  11. TEMODAR [Suspect]
     Indication: MIXED OLIGO-ASTROCYTOMA
     Dosage: 200-300 MG QD ORAL
     Route: 048
     Dates: start: 20040312, end: 20040315
  12. TEMODAR [Suspect]
     Indication: MIXED OLIGO-ASTROCYTOMA
     Dosage: 200-300 MG QD ORAL
     Route: 048
     Dates: start: 20040107
  13. DILANTIN [Concomitant]

REACTIONS (1)
  - HEMIPARESIS [None]
